FAERS Safety Report 7640669-1 (Version None)
Quarter: 2011Q3

REPORT INFORMATION
  Report Type: 
  Country: None (occurrence: None)
  Receive Date: 20110721
  Receipt Date: 20110707
  Transmission Date: 20111222
  Serious: Yes (Other)
  Sender: FDA-Public Use
  Company Number: 2011MA008552

PATIENT
  Age: 45 Year
  Sex: Female

DRUGS (2)
  1. BISOPROLOL FUMARATE [Concomitant]
  2. RAMIPRIL [Suspect]
     Indication: CARDIAC FAILURE
     Dosage: 2.5 MG;QD;
     Dates: start: 20110501

REACTIONS (9)
  - COUGH [None]
  - RHINORRHOEA [None]
  - SKIN DISCOLOURATION [None]
  - FATIGUE [None]
  - DIZZINESS [None]
  - FEELING ABNORMAL [None]
  - PNEUMONIA [None]
  - ALOPECIA [None]
  - ASTHENIA [None]
